FAERS Safety Report 10097989 (Version 1)
Quarter: 2014Q2

REPORT INFORMATION
  Report Type: Spontaneous
  Country: DE (occurrence: DE)
  Receive Date: 20140423
  Receipt Date: 20140423
  Transmission Date: 20141212
  Serious: Yes (Other)
  Sender: FDA-Public Use
  Company Number: DE-ASTRAZENECA-2014SE26685

PATIENT
  Sex: Female

DRUGS (1)
  1. PULMICORT TURBOHALER [Suspect]
     Route: 055

REACTIONS (1)
  - Dyspnoea [Unknown]
